FAERS Safety Report 4612675-2 (Version None)
Quarter: 2005Q1

REPORT INFORMATION
  Report Type: 
  Country: None (occurrence: None)
  Receive Date: 20050316
  Receipt Date: 20050316
  Transmission Date: 20050727
  Serious: Yes (Other)
  Sender: FDA-Public Use
  Company Number: None

PATIENT
  Sex: Male
  Weight: 17.2367 kg

DRUGS (1)
  1. ELIDEL [Suspect]
     Indication: ECZEMA
     Dosage: TWICE A DAY  OVER BODY  SUBCUTANEO
     Route: 058
     Dates: start: 20040401, end: 20050310

REACTIONS (9)
  - ABDOMINAL PAIN [None]
  - CONSTIPATION [None]
  - GASTROENTERITIS [None]
  - INFLUENZA [None]
  - NASOPHARYNGITIS [None]
  - PHARYNGITIS [None]
  - RHINITIS [None]
  - SINUSITIS [None]
  - VOMITING [None]
